FAERS Safety Report 15043683 (Version 1)
Quarter: 2018Q2

REPORT INFORMATION
  Report Type: Spontaneous
  Country: US (occurrence: US)
  Receive Date: 20180531
  Receipt Date: 20180531
  Transmission Date: 20180711
  Serious: Yes (Life-Threatening, Hospitalization, Disabling, Other)
  Sender: FDA-Public Use
  Company Number: None

PATIENT
  Age: 43 Year
  Sex: Female
  Weight: 54.43 kg

DRUGS (6)
  1. ACNE PILLS [Concomitant]
  2. ACNE CREAM [Concomitant]
     Active Substance: UNSPECIFIED INGREDIENT
  3. ADVIL [Concomitant]
     Active Substance: IBUPROFEN
  4. COLD MEDICINE [Concomitant]
     Active Substance: UNSPECIFIED INGREDIENT
  5. CYCLOBENZAPRINE. [Suspect]
     Active Substance: CYCLOBENZAPRINE
     Indication: MUSCLE SPASMS
     Dosage: ?          QUANTITY:1 DF DOSAGE FORM;?
     Route: 048
     Dates: start: 20100607, end: 20180507
  6. STOMACH ACID RELIEF [Concomitant]

REACTIONS (2)
  - Dyspnoea [None]
  - Dysphagia [None]

NARRATIVE: CASE EVENT DATE: 20180507
